FAERS Safety Report 4322922-2 (Version None)
Quarter: 2004Q1

REPORT INFORMATION
  Report Type: 
  Country: None (occurrence: None)
  Receive Date: 20040322
  Receipt Date: 20040129
  Transmission Date: 20041129
  Serious: Yes (Other)
  Sender: FDA-Public Use
  Company Number: PHEH2003US11248

PATIENT
  Age: 79 Year
  Sex: Female

DRUGS (5)
  1. ZOMETA [Suspect]
     Indication: HYPERCALCAEMIA
     Dosage: 4 MG EVERY 3 WEEKS, INTRAVENOUS
     Route: 042
     Dates: start: 20031119
  2. SYNTHROID [Concomitant]
  3. PLAVIX [Concomitant]
  4. REGLAN [Concomitant]
  5. NEXIUM [Concomitant]

REACTIONS (3)
  - BLOOD CREATININE INCREASED [None]
  - CONSTIPATION [None]
  - HYPERCALCAEMIA [None]
